FAERS Safety Report 4661096-5 (Version None)
Quarter: 2005Q2

REPORT INFORMATION
  Report Type: 
  Country: None (occurrence: None)
  Receive Date: 20050511
  Receipt Date: 20050502
  Transmission Date: 20051028
  Serious: Yes (Hospitalization)
  Sender: FDA-Public Use
  Company Number: 2005062978

PATIENT
  Age: 17 Year
  Sex: Male

DRUGS (2)
  1. BEXTRA [Suspect]
     Indication: TOOTH EXTRACTION
     Dosage: 40 MG (40 MG, 1 IN 1 D), ORAL
     Route: 048
     Dates: start: 20041020, end: 20041021
  2. FAMOTIDINE [Concomitant]

REACTIONS (2)
  - HYPERSENSITIVITY [None]
  - STEVENS-JOHNSON SYNDROME [None]
